FAERS Safety Report 10066393 (Version 1)
Quarter: 2014Q2

REPORT INFORMATION
  Report Type: Report from Study
  Country: US (occurrence: US)
  Receive Date: 20140408
  Receipt Date: 20140408
  Transmission Date: 20141212
  Serious: Yes (Hospitalization)
  Sender: FDA-Public Use
  Company Number: PHHO2014US004921

PATIENT
  Age: 50 Year
  Sex: Male
  Weight: 96.1 kg

DRUGS (13)
  1. AFINITOR [Suspect]
     Indication: GLIOBLASTOMA
     Dosage: 5 MG, QD
     Route: 048
     Dates: start: 20121121, end: 20121204
  2. SORAFENIB [Suspect]
     Indication: GLIOBLASTOMA
     Dosage: 400 MG, BID
     Route: 048
     Dates: start: 20121121, end: 20121204
  3. DEXAMETHASONE [Concomitant]
     Dosage: 1 MG, BID
  4. LOVENOX [Concomitant]
     Dosage: 100 MG, Q12H
     Route: 058
     Dates: end: 20121205
  5. LAMICTAL [Concomitant]
     Dosage: 200 MG, BID
  6. CELEXA [Concomitant]
     Dosage: 20 MG, QD
     Route: 048
  7. COZAAR [Concomitant]
     Dosage: 25 MG, QD
     Route: 048
  8. LEVETIRACETAM [Concomitant]
     Dosage: 1500 MG Q AM AND 2000 MG Q PM
  9. LIPITOR [Concomitant]
     Dosage: 10 MG, QD
     Route: 048
  10. PROTONIX [Concomitant]
     Dosage: 40 MG, QD
     Route: 048
  11. VIMPAT [Concomitant]
     Dosage: 100 MG, BID
     Route: 048
  12. FISH OIL [Concomitant]
     Dosage: 1 DF, BID
     Route: 048
  13. ATIVAN [Concomitant]
     Dosage: 1 MG, BID
     Route: 048

REACTIONS (1)
  - Haemorrhage intracranial [Unknown]
